FAERS Safety Report 4844199-1 (Version None)
Quarter: 2005Q4

REPORT INFORMATION
  Report Type: 
  Country: None (occurrence: None)
  Receive Date: 20051202
  Receipt Date: 20051123
  Transmission Date: 20060501
  Serious: Yes (Hospitalization)
  Sender: FDA-Public Use
  Company Number: BR-ABBOTT-05P-020-0317990-00

PATIENT
  Age: 45 Year
  Sex: Male

DRUGS (3)
  1. AKINETON [Suspect]
     Indication: STRESS
     Route: 048
     Dates: start: 20051122, end: 20051123
  2. CINNARIZINE [Concomitant]
     Indication: DRUG USE FOR UNKNOWN INDICATION
     Route: 048
  3. DIMETICONE [Concomitant]
     Indication: DRUG USE FOR UNKNOWN INDICATION
     Route: 048

REACTIONS (1)
  - ASTHENIA [None]
